FAERS Safety Report 9834512 (Version 3)
Quarter: 2014Q2

REPORT INFORMATION
  Report Type: Spontaneous
  Country: US (occurrence: US)
  Receive Date: 20140122
  Receipt Date: 20140527
  Transmission Date: 20141212
  Serious: No
  Sender: FDA-Public Use
  Company Number: US-009507513-1401USA009884

PATIENT
  Sex: Female
  Weight: 77.98 kg

DRUGS (3)
  1. OXYTROL FOR WOMEN [Suspect]
     Indication: HYPERTONIC BLADDER
     Dosage: 1 DF, Q4D
     Route: 062
  2. BENTYL [Concomitant]
     Indication: MULTIPLE SCLEROSIS
     Dosage: UNK, UNKNOWN
  3. AMITRIPTYLINE HYDROCHLORIDE [Concomitant]
     Indication: MULTIPLE SCLEROSIS
     Dosage: UNK, UNKNOWN

REACTIONS (3)
  - Application site pruritus [Not Recovered/Not Resolved]
  - Application site erythema [Not Recovered/Not Resolved]
  - Drug effect decreased [Unknown]
